FAERS Safety Report 8369896-5 (Version None)
Quarter: 2012Q1

REPORT INFORMATION
  Report Type: 
  Country: None (occurrence: None)
  Receive Date: 20120323
  Receipt Date: 20110808
  Transmission Date: 20120608
  Serious: Yes (Other)
  Sender: FDA-Public Use
  Company Number: 163-21880-11081087

PATIENT
  Age: 92 Year
  Sex: Male

DRUGS (2)
  1. MIRALAX [Concomitant]
  2. REVLIMID [Suspect]
     Indication: MULTIPLE MYELOMA
     Dosage: 5 MG, DAILY X 14 DAYS PO
     Route: 048
     Dates: start: 20110310, end: 20110726

REACTIONS (1)
  - RECTAL HAEMORRHAGE [None]
